FAERS Safety Report 6268483-2 (Version None)
Quarter: 2009Q3

REPORT INFORMATION
  Report Type: 
  Country: None (occurrence: None)
  Receive Date: 20090710
  Receipt Date: 20090710
  Transmission Date: 20100115
  Serious: No
  Sender: FDA-Public Use
  Company Number: None

PATIENT
  Age: 39 Year
  Sex: Male
  Weight: 100.2449 kg

DRUGS (1)
  1. PRILOSEC OTC [Suspect]
     Indication: DYSPEPSIA
     Dosage: 20 MG 1 A DAY PO
     Route: 048
     Dates: start: 20090610, end: 20090614

REACTIONS (7)
  - ANXIETY [None]
  - BLOOD HOMOCYSTEINE DECREASED [None]
  - CONSTIPATION [None]
  - DEPRESSION [None]
  - DIZZINESS [None]
  - PALPITATIONS [None]
  - VITAMIN B12 DECREASED [None]
